FAERS Safety Report 20893425 (Version 1)
Quarter: 2022Q2

REPORT INFORMATION
  Report Type: Spontaneous
  Country: GB (occurrence: GB)
  Receive Date: 20220531
  Receipt Date: 20220531
  Transmission Date: 20220720
  Serious: Yes (Other)
  Sender: FDA-Public Use
  Company Number: GB-drreddys-LIT/UKI/22/0150468

PATIENT
  Age: 58 Year
  Sex: Male

DRUGS (29)
  1. IMATINIB [Suspect]
     Active Substance: IMATINIB
     Indication: Prophylaxis
  2. IMATINIB [Suspect]
     Active Substance: IMATINIB
     Indication: Immunosuppression
  3. IMATINIB [Suspect]
     Active Substance: IMATINIB
     Indication: Stem cell donor
  4. IMATINIB [Suspect]
     Active Substance: IMATINIB
     Indication: Chemotherapy
  5. CYCLOSPORINE [Suspect]
     Active Substance: CYCLOSPORINE
     Indication: Immunosuppression
  6. CYCLOSPORINE [Suspect]
     Active Substance: CYCLOSPORINE
     Indication: Stem cell donor
  7. CYCLOSPORINE [Suspect]
     Active Substance: CYCLOSPORINE
     Indication: Chemotherapy
  8. CYCLOSPORINE [Suspect]
     Active Substance: CYCLOSPORINE
     Indication: Prophylaxis
  9. TACROLIMUS [Suspect]
     Active Substance: TACROLIMUS
     Indication: Immunosuppression
  10. TACROLIMUS [Suspect]
     Active Substance: TACROLIMUS
     Indication: Stem cell donor
  11. TACROLIMUS [Suspect]
     Active Substance: TACROLIMUS
     Indication: Chemotherapy
  12. TACROLIMUS [Suspect]
     Active Substance: TACROLIMUS
     Indication: Prophylaxis
  13. RITUXIMAB [Suspect]
     Active Substance: RITUXIMAB
     Indication: Chemotherapy
  14. RITUXIMAB [Suspect]
     Active Substance: RITUXIMAB
     Indication: Prophylaxis
  15. RITUXIMAB [Suspect]
     Active Substance: RITUXIMAB
     Indication: Immunosuppression
  16. RITUXIMAB [Suspect]
     Active Substance: RITUXIMAB
     Indication: Stem cell donor
  17. ABATACEPT [Suspect]
     Active Substance: ABATACEPT
     Indication: Chemotherapy
  18. ABATACEPT [Suspect]
     Active Substance: ABATACEPT
     Indication: Prophylaxis
  19. ABATACEPT [Suspect]
     Active Substance: ABATACEPT
     Indication: Prophylaxis
  20. ABATACEPT [Suspect]
     Active Substance: ABATACEPT
     Indication: Stem cell donor
  21. FLUDARABINE [Concomitant]
     Active Substance: FLUDARABINE PHOSPHATE
     Indication: Prophylaxis
  22. FLUDARABINE [Concomitant]
     Active Substance: FLUDARABINE PHOSPHATE
     Indication: Immunosuppression
  23. FLUDARABINE [Concomitant]
     Active Substance: FLUDARABINE PHOSPHATE
     Indication: Stem cell donor
  24. CYTARABINE [Concomitant]
     Active Substance: CYTARABINE
     Indication: Prophylaxis
  25. CYTARABINE [Concomitant]
     Active Substance: CYTARABINE
     Indication: Immunosuppression
  26. CYTARABINE [Concomitant]
     Active Substance: CYTARABINE
     Indication: Stem cell donor
  27. CYTARABINE [Concomitant]
     Active Substance: CYTARABINE
     Indication: Chemotherapy
  28. FILGRASTIM [Concomitant]
     Active Substance: FILGRASTIM
     Indication: Chemotherapy
  29. IDARUBICIN [Concomitant]
     Active Substance: IDARUBICIN
     Indication: Chemotherapy

REACTIONS (6)
  - Disseminated varicella zoster virus infection [Unknown]
  - Fungaemia [Unknown]
  - Pseudomonas infection [Unknown]
  - Cytomegalovirus infection [Unknown]
  - Pneumonia [Unknown]
  - Sepsis [Unknown]
